FAERS Safety Report 10170148 (Version 1)
Quarter: 2014Q2

REPORT INFORMATION
  Report Type: Spontaneous
  Country: US (occurrence: US)
  Receive Date: 20140513
  Receipt Date: 20140513
  Transmission Date: 20141212
  Serious: Yes (Life-Threatening)
  Sender: FDA-Public Use
  Company Number: US-BANPHARM-20142638

PATIENT
  Age: 28 Year
  Sex: Male

DRUGS (1)
  1. NAPROXEN UNKNOWN PRODUCT [Suspect]
     Indication: SUICIDE ATTEMPT
     Dosage: 70.4 G, 320 DF,
     Route: 048

REACTIONS (4)
  - Overdose [Recovered/Resolved]
  - Generalised tonic-clonic seizure [Recovered/Resolved]
  - Encephalopathy [Recovered/Resolved]
  - Metabolic acidosis [Recovered/Resolved]
